FAERS Safety Report 14554527 (Version 1)
Quarter: 2018Q1

REPORT INFORMATION
  Report Type: Spontaneous
  Country: DE (occurrence: DE)
  Receive Date: 20180220
  Receipt Date: 20180220
  Transmission Date: 20180509
  Serious: Yes (Other)
  Sender: FDA-Public Use
  Company Number: DE-TEVA-2018-DE-857518

PATIENT
  Sex: Male

DRUGS (1)
  1. DOXEPIN [Suspect]
     Active Substance: DOXEPIN
     Route: 065

REACTIONS (1)
  - Delirium [Unknown]
